FAERS Safety Report 13904423 (Version 1)
Quarter: 2017Q3

REPORT INFORMATION
  Report Type: Spontaneous
  Country: US (occurrence: None)
  Receive Date: 20170824
  Receipt Date: 20170824
  Transmission Date: 20171127
  Serious: No
  Sender: FDA-Public Use
  Company Number: None

PATIENT
  Age: 41 Year
  Sex: Female

DRUGS (1)
  1. IMATINIB MES TAB 100MG [Suspect]
     Active Substance: IMATINIB MESYLATE

REACTIONS (6)
  - Migraine [None]
  - Vomiting [None]
  - Abdominal pain [None]
  - Blood pressure decreased [None]
  - Nausea [None]
  - Therapy change [None]

NARRATIVE: CASE EVENT DATE: 20170823
